FAERS Safety Report 24724669 (Version 2)
Quarter: 2024Q4

REPORT INFORMATION
  Report Type: Spontaneous
  Country: US (occurrence: US)
  Receive Date: 20241212
  Receipt Date: 20241231
  Transmission Date: 20250115
  Serious: Yes (Other)
  Sender: TEVA
  Company Number: US-TEVA-VS-3272161

PATIENT
  Age: 71 Year
  Sex: Male

DRUGS (2)
  1. ABIRATERONE [Suspect]
     Active Substance: ABIRATERONE\ABIRATERONE ACETATE
     Indication: Prostate cancer
     Route: 065
  2. PREDNISONE [Suspect]
     Active Substance: PREDNISONE
     Indication: Prophylaxis
     Route: 048

REACTIONS (5)
  - Acquired apparent mineralocorticoid excess [Recovering/Resolving]
  - Rhabdomyolysis [Unknown]
  - Hypertension [Recovered/Resolved]
  - Drug ineffective [Unknown]
  - Hypokalaemia [Recovered/Resolved]
